FAERS Safety Report 10196589 (Version 2)
Quarter: 2014Q2

REPORT INFORMATION
  Report Type: Spontaneous
  Country: US (occurrence: None)
  Receive Date: 20140522
  Receipt Date: 20140604
  Transmission Date: 20141212
  Serious: Yes (Hospitalization)
  Sender: FDA-Public Use
  Company Number: FK201401821

PATIENT
  Age: 41 Year
  Sex: Male

DRUGS (2)
  1. METHOTREXATE [Suspect]
     Indication: RASH GENERALISED
  2. METHOTREXATE [Suspect]
     Indication: PSORIATIC ARTHROPATHY

REACTIONS (6)
  - Pleuropericarditis [None]
  - Pericardial effusion [None]
  - Pleural effusion [None]
  - Oedema peripheral [None]
  - Chest discomfort [None]
  - Blood lactate dehydrogenase increased [None]
